FAERS Safety Report 8872120 (Version 1)
Quarter: 2012Q4

REPORT INFORMATION
  Report Type: 
  Country: FR (occurrence: FR)
  Receive Date: 20121030
  Receipt Date: 20121030
  Transmission Date: 20130627
  Serious: Yes (Disabling)
  Sender: FDA-Public Use
  Company Number: FR-ROCHE-1148092

PATIENT
  Sex: Male
  Weight: 23 kg

DRUGS (3)
  1. XOLAIR [Suspect]
     Indication: ASTHMA
     Route: 058
     Dates: start: 20120201
  2. SERETIDE [Concomitant]
     Route: 065
     Dates: start: 2012
  3. SERETIDE [Concomitant]
     Dosage: 1 inhalation
     Route: 065
     Dates: start: 201208

REACTIONS (1)
  - Tremor [Not Recovered/Not Resolved]
